FAERS Safety Report 9641404 (Version 1)
Quarter: 2013Q4

REPORT INFORMATION
  Report Type: Spontaneous
  Country: US (occurrence: None)
  Receive Date: 20131022
  Receipt Date: 20131022
  Transmission Date: 20140711
  Serious: No
  Sender: FDA-Public Use
  Company Number: None

PATIENT
  Age: 51 Year
  Sex: Male
  Weight: 59.3 kg

DRUGS (8)
  1. AMIKACIN [Suspect]
     Indication: ENTEROBACTER INFECTION
     Dates: start: 20131004, end: 20131021
  2. DAPTOMYCIN [Concomitant]
  3. HEPARIN DRIP [Concomitant]
  4. INSULIN [Concomitant]
  5. METOPROLOL [Concomitant]
  6. OXYCODONE [Concomitant]
  7. PANTOPRAZOLE [Concomitant]
  8. SENOKOT S [Concomitant]

REACTIONS (1)
  - Ototoxicity [None]
